FAERS Safety Report 23700513 (Version 1)
Quarter: 2024Q2

REPORT INFORMATION
  Report Type: Report from Study
  Country: US (occurrence: US)
  Receive Date: 20240403
  Receipt Date: 20240403
  Transmission Date: 20240716
  Serious: Yes (Other)
  Sender: FDA-Public Use
  Company Number: US-JNJFOC-20240168074

PATIENT

DRUGS (3)
  1. DARZALEX FASPRO [Suspect]
     Active Substance: DARATUMUMAB\HYALURONIDASE-FIHJ
     Indication: Plasma cell myeloma
     Route: 058
     Dates: start: 20231107, end: 20240313
  2. VELCADE [Concomitant]
     Active Substance: BORTEZOMIB
  3. REVLIMID [Concomitant]
     Active Substance: LENALIDOMIDE

REACTIONS (11)
  - Urinary retention [Unknown]
  - Night sweats [Unknown]
  - Headache [Unknown]
  - Dry mouth [Unknown]
  - Tachycardia [Unknown]
  - Fatigue [Unknown]
  - Chills [Unknown]
  - Bowel movement irregularity [Unknown]
  - Nausea [Unknown]
  - Epistaxis [Unknown]
  - Laboratory test abnormal [Unknown]
